FAERS Safety Report 18570233 (Version 7)
Quarter: 2021Q4

REPORT INFORMATION
  Report Type: Spontaneous
  Country: US (occurrence: US)
  Receive Date: 20201202
  Receipt Date: 20211209
  Transmission Date: 20220303
  Serious: Yes (Other)
  Sender: FDA-Public Use
  Company Number: US-PFIZER INC-2020068044

PATIENT
  Age: 62 Year
  Sex: Male

DRUGS (3)
  1. INSPRA [Suspect]
     Active Substance: EPLERENONE
     Indication: Blood pressure management
     Dosage: 50 MG, 2X/DAY
     Route: 048
     Dates: start: 2004
  2. INSPRA [Suspect]
     Active Substance: EPLERENONE
     Indication: Essential hypertension
  3. NADOLOL [Concomitant]
     Active Substance: NADOLOL
     Dosage: 20 MG, 1X/DAY
     Dates: start: 2010

REACTIONS (4)
  - Haemorrhage [Unknown]
  - Vein disorder [Unknown]
  - Abdominal hernia [Unknown]
  - Alopecia [Unknown]

NARRATIVE: CASE EVENT DATE: 20050101
